FAERS Safety Report 19212813 (Version 1)
Quarter: 2021Q2

REPORT INFORMATION
  Report Type: Spontaneous
  Country: GB (occurrence: GB)
  Receive Date: 20210504
  Receipt Date: 20210504
  Transmission Date: 20210717
  Serious: Yes (Life-Threatening, Other)
  Sender: FDA-Public Use
  Company Number: GB-PFIZER INC-2021450015

PATIENT
  Age: 40 Year
  Sex: Female
  Weight: 114.75 kg

DRUGS (2)
  1. DEPO?MEDRONE [Suspect]
     Active Substance: METHYLPREDNISOLONE
     Indication: TENOSYNOVITIS STENOSANS
     Dosage: UNK
     Route: 051
     Dates: start: 20210414, end: 20210414
  2. CURANAIL [Concomitant]
     Dosage: UNK

REACTIONS (6)
  - Chest discomfort [Recovered/Resolved]
  - Discomfort [Recovered/Resolved]
  - Throat tightness [Recovered/Resolved]
  - Pruritus [Recovered/Resolved]
  - Urticaria [Recovered/Resolved]
  - Sensation of foreign body [Recovered/Resolved]

NARRATIVE: CASE EVENT DATE: 20210414
